FAERS Safety Report 5361433-2 (Version None)
Quarter: 2007Q2

REPORT INFORMATION
  Report Type: 
  Country: None (occurrence: None)
  Receive Date: 20070530
  Receipt Date: 20070212
  Transmission Date: 20071010
  Serious: No
  Sender: FDA-Public Use
  Company Number: 2007PV029959

PATIENT
  Age: 58 Year
  Sex: Female
  Weight: 120.2032 kg

DRUGS (7)
  1. BYETTA [Suspect]
     Indication: DIABETES MELLITUS NON-INSULIN-DEPENDENT
     Dosage: 10 MCG; BID; SC, 5 MCG; BID; SC
     Route: 058
     Dates: start: 20060501, end: 20060101
  2. BYETTA [Suspect]
     Indication: DIABETES MELLITUS NON-INSULIN-DEPENDENT
     Dosage: 10 MCG; BID; SC, 5 MCG; BID; SC
     Route: 058
     Dates: start: 20060101
  3. METFORMIN HCL [Concomitant]
  4. AMARYL [Concomitant]
  5. METFORMIN  ER [Concomitant]
  6. ACTOS [Concomitant]
  7. ACTOPLUS MET [Concomitant]

REACTIONS (2)
  - BLOOD GLUCOSE INCREASED [None]
  - WEIGHT INCREASED [None]
